FAERS Safety Report 11654995 (Version 1)
Quarter: 2015Q4

REPORT INFORMATION
  Report Type: Spontaneous
  Country: IL (occurrence: IL)
  Receive Date: 20151023
  Receipt Date: 20151023
  Transmission Date: 20160304
  Serious: Yes (Other)
  Sender: FDA-Public Use
  Company Number: IL-WATSON-2015-20724

PATIENT
  Age: 7 Month
  Sex: Male
  Weight: 10.2 kg

DRUGS (1)
  1. DEXAMETHASONE (UNKNOWN) [Suspect]
     Active Substance: DEXAMETHASONE
     Indication: ADENOIDAL HYPERTROPHY
     Dosage: 2 DROPS TO EACH NOSTRIL 3 TIMES DAILY
     Route: 045

REACTIONS (2)
  - Medication error [Unknown]
  - Cushing^s syndrome [Recovered/Resolved]
